FAERS Safety Report 22167186 (Version 1)
Quarter: 2023Q2

REPORT INFORMATION
  Report Type: Spontaneous
  Country: US (occurrence: US)
  Receive Date: 20230403
  Receipt Date: 20230403
  Transmission Date: 20230722
  Serious: Yes (Hospitalization, Other)
  Sender: FDA-Public Use
  Company Number: US-MYLANLABS-2023M1034156

PATIENT
  Age: 63 Year
  Sex: Male

DRUGS (8)
  1. CISPLATIN [Suspect]
     Active Substance: CISPLATIN
     Indication: Bladder transitional cell carcinoma
     Dosage: UNK; NEOADJUVANT CHEMOTHERAPY
     Route: 065
     Dates: end: 202007
  2. SODIUM CHLORIDE [Suspect]
     Active Substance: SODIUM CHLORIDE
     Indication: Renal salt-wasting syndrome
     Dosage: 1 GRAM, QID  TABLET
     Route: 048
  3. SODIUM CHLORIDE [Suspect]
     Active Substance: SODIUM CHLORIDE
     Dosage: UNK; DOSAGE TAPERED FOR TABLET
     Route: 048
  4. FLUDROCORTISONE [Suspect]
     Active Substance: FLUDROCORTISONE
     Indication: Renal salt-wasting syndrome
     Dosage: 0.1 MILLIGRAM, BID
     Route: 065
  5. FLUDROCORTISONE [Suspect]
     Active Substance: FLUDROCORTISONE
     Dosage: UNK; DOSAGE TAPERED
     Route: 065
  6. METHOTREXATE [Concomitant]
     Active Substance: METHOTREXATE
     Indication: Bladder transitional cell carcinoma
     Dosage: UNK; NEOADJUVANT CHEMOTHERAPY
     Route: 065
     Dates: end: 202007
  7. VINBLASTINE [Concomitant]
     Active Substance: VINBLASTINE
     Indication: Bladder transitional cell carcinoma
     Dosage: UNK; NEOADJUVANT CHEMOTHERAPY
     Route: 065
     Dates: end: 202007
  8. DOXORUBICIN [Concomitant]
     Active Substance: DOXORUBICIN
     Indication: Bladder transitional cell carcinoma
     Dosage: UNK; NEOADJUVANT CHEMOTHERAPY
     Route: 065
     Dates: end: 202007

REACTIONS (7)
  - Renal salt-wasting syndrome [Recovering/Resolving]
  - Rebound effect [Unknown]
  - Hyponatraemia [Unknown]
  - Acute kidney injury [Unknown]
  - Acidosis hyperchloraemic [Unknown]
  - Hyperkalaemia [Unknown]
  - Hypovolaemia [Unknown]
